FAERS Safety Report 9436960 (Version 2)
Quarter: 2015Q1

REPORT INFORMATION
  Report Type: Spontaneous
  Country: BR (occurrence: BR)
  Receive Date: 20130802
  Receipt Date: 20150220
  Transmission Date: 20150721
  Serious: Yes (Disabling)
  Sender: FDA-Public Use
  Company Number: BR-BRISTOL-MYERS SQUIBB COMPANY-16665960

PATIENT
  Sex: Male
  Weight: 75 kg

DRUGS (2)
  1. SPRYCEL [Suspect]
     Active Substance: DASATINIB
     Indication: CHRONIC MYELOID LEUKAEMIA
  2. SPRYCEL [Suspect]
     Active Substance: DASATINIB
     Indication: CHRONIC MYELOID LEUKAEMIA
     Dosage: DOSE:50MG TABS IN AFTERNOON
     Route: 048
     Dates: start: 2009

REACTIONS (18)
  - Vision blurred [Recovering/Resolving]
  - Fatigue [Unknown]
  - Diarrhoea [Unknown]
  - Chest discomfort [Recovering/Resolving]
  - Abdominal pain upper [Recovering/Resolving]
  - Myalgia [Unknown]
  - Arthralgia [Unknown]
  - Dyspnoea [Unknown]
  - Exposure via father [Unknown]
  - Blood uric acid increased [Recovering/Resolving]
  - Burning sensation [Recovering/Resolving]
  - Hot flush [Recovering/Resolving]
  - Depression [Recovering/Resolving]
  - Pregnancy [Unknown]
  - Normal newborn [Unknown]
  - Dizziness [Unknown]
  - Ocular hyperaemia [Recovering/Resolving]
  - Fluid retention [Unknown]
